FAERS Safety Report 5546785-2 (Version None)
Quarter: 2007Q4

REPORT INFORMATION
  Report Type: 
  Country: None (occurrence: None)
  Receive Date: 20071211
  Receipt Date: 20071129
  Transmission Date: 20080405
  Serious: Yes (Death)
  Sender: FDA-Public Use
  Company Number: DE-ROCHE-534071

PATIENT
  Age: 58 Year
  Sex: Male

DRUGS (15)
  1. VALGANCICLOVIR HCL [Suspect]
     Dosage: ORAL CMV PROPHYLAXIS WITH 1X 900 MG VALGANCICLOVIR PER DAY WITHIN 14 DAYS OF TRANSPLANTATION UNTIL +
     Route: 048
     Dates: start: 20070327, end: 20070724
  2. MYCOPHENOLATE MOFETIL [Concomitant]
     Dates: start: 20070101, end: 20071101
  3. CYCLOSPORINE [Concomitant]
     Dates: start: 20070101, end: 20071101
  4. URBASON [Concomitant]
     Dates: start: 20070101, end: 20071101
  5. CARVEDILOL [Concomitant]
     Dates: end: 20071101
  6. OMEPRAZOLE [Concomitant]
     Dates: end: 20071101
  7. AMLODIPINE [Concomitant]
     Dates: end: 20071101
  8. ASPIRIN [Concomitant]
     Dates: end: 20071101
  9. HYDROCHLOROTHIAZIDE [Concomitant]
     Dates: end: 20071101
  10. PRAVASTATIN [Concomitant]
     Dates: end: 20071101
  11. ALLOPURINOL [Concomitant]
     Dates: end: 20071101
  12. PENTAMIDINE INHALATION [Concomitant]
     Route: 055
     Dates: start: 20070101, end: 20071101
  13. MIRTAZAPINE [Concomitant]
     Dates: end: 20071101
  14. NEORECORMON [Concomitant]
     Dosage: UNITS REPORTED AS ^IE^
     Dates: end: 20071101
  15. DEKRISTOL [Concomitant]
     Dosage: DRUG REPROTRED AS ^DEKRISTOL 2000^. UNITS REPORTED AS ^IE^
     Dates: end: 20071101

REACTIONS (1)
  - DEATH [None]
